FAERS Safety Report 4386468-8 (Version None)
Quarter: 2004Q2

REPORT INFORMATION
  Report Type: 
  Country: None (occurrence: None)
  Receive Date: 20040629
  Receipt Date: 20040623
  Transmission Date: 20050107
  Serious: Yes (Other)
  Sender: FDA-Public Use
  Company Number: FR-ROCHE-371754

PATIENT
  Age: 19 Year
  Sex: Female

DRUGS (2)
  1. ROACCUTANE [Suspect]
     Indication: ACNE
     Dosage: REPORTED AS: INITIAL DOSAGE OF 10MG DAILY WHICH WAS PROGRESSIVELY INCREASED TO 30MG DAILY.
     Route: 048
     Dates: start: 20031015
  2. CYCLEANE [Concomitant]
     Indication: CONTRACEPTION
     Route: 048

REACTIONS (1)
  - HYPERTHYROIDISM [None]
